FAERS Safety Report 5348005-0 (Version None)
Quarter: 2007Q2

REPORT INFORMATION
  Report Type: 
  Country: None (occurrence: None)
  Receive Date: 20070606
  Receipt Date: 20070604
  Transmission Date: 20071010
  Serious: Yes (Death, Other)
  Sender: FDA-Public Use
  Company Number: TW-BRISTOL-MYERS SQUIBB COMPANY-13803192

PATIENT
  Age: 60 Year
  Sex: Female

DRUGS (3)
  1. METHOTREXATE SODIUM [Suspect]
     Indication: LYMPHOMA
     Route: 037
  2. HYDROCORTISONE [Suspect]
     Indication: LYMPHOMA
     Route: 037
  3. CYTARABINE [Suspect]
     Route: 037

REACTIONS (2)
  - SEPSIS [None]
  - SPINAL CORD DISORDER [None]
